FAERS Safety Report 16767530 (Version 1)
Quarter: 2019Q3

REPORT INFORMATION
  Report Type: Report from Study
  Country: CA (occurrence: CA)
  Receive Date: 20190903
  Receipt Date: 20190903
  Transmission Date: 20191005
  Serious: Yes (Other)
  Sender: FDA-Public Use
  Company Number: CA-NALPROPION PHARMACEUTICALS INC.-2019-007767

PATIENT

DRUGS (9)
  1. CONTRAVE [Suspect]
     Active Substance: BUPROPION HYDROCHLORIDE\NALTREXONE HYDROCHLORIDE
     Dosage: ONE TABLET IN MORNING AND 1 TABLET EVENING (1 DOSAGE FORMS,2 IN 1 D)
     Route: 048
     Dates: start: 20190807
  2. CONTRAVE [Suspect]
     Active Substance: BUPROPION HYDROCHLORIDE\NALTREXONE HYDROCHLORIDE
     Indication: WEIGHT CONTROL
     Dosage: ONE TABLET IN MORNING (1 DOSAGE FORMS,1 IN 1 D)
     Route: 048
     Dates: start: 20190612, end: 20190621
  3. CONTRAVE [Suspect]
     Active Substance: BUPROPION HYDROCHLORIDE\NALTREXONE HYDROCHLORIDE
     Dosage: ONE TABLET IN MORNING, RESTARTED THE TITRATION AGAIN (1 DF, 1 IN 1 D)
     Route: 048
     Dates: start: 20190731, end: 20190806
  4. CONTRAVE [Suspect]
     Active Substance: BUPROPION HYDROCHLORIDE\NALTREXONE HYDROCHLORIDE
     Dosage: 3 TABLETS DAILY
     Route: 048
     Dates: start: 2019, end: 2019
  5. SYNTHROID [Concomitant]
     Active Substance: LEVOTHYROXINE SODIUM
     Indication: HYPOTHYROIDISM
     Dosage: 75 MCG
     Route: 048
  6. CONTRAVE [Suspect]
     Active Substance: BUPROPION HYDROCHLORIDE\NALTREXONE HYDROCHLORIDE
     Dosage: ONE TABLET IN MORNING, ONE TABLET IN EVENING (1 DF, 2 IN 1D)
     Route: 048
     Dates: start: 20190622, end: 2019
  7. APO-HYDROXYZINE [Concomitant]
     Active Substance: HYDROXYZINE HYDROCHLORIDE
     Indication: SEASONAL ALLERGY
     Dosage: 200 MG
     Route: 048
  8. HYDROXYZINE [Concomitant]
     Active Substance: HYDROXYZINE HYDROCHLORIDE
     Indication: HYPERSENSITIVITY
     Dosage: 200 MG
     Route: 048
  9. METFORMIN [Concomitant]
     Active Substance: METFORMIN HYDROCHLORIDE
     Indication: DIABETES MELLITUS
     Dosage: 500 MG
     Route: 048

REACTIONS (10)
  - Headache [Recovered/Resolved]
  - Drug titration error [Unknown]
  - Bedridden [Unknown]
  - Weight increased [Unknown]
  - Nausea [Recovered/Resolved]
  - General physical health deterioration [Unknown]
  - Constipation [Recovered/Resolved]
  - Back injury [Recovering/Resolving]
  - Foreign body in respiratory tract [Unknown]
  - Diarrhoea [Recovered/Resolved]

NARRATIVE: CASE EVENT DATE: 2019
